FAERS Safety Report 23048117 (Version 1)
Quarter: 2023Q4

REPORT INFORMATION
  Report Type: Spontaneous
  Country: US (occurrence: US)
  Receive Date: 20231010
  Receipt Date: 20231010
  Transmission Date: 20240109
  Serious: No
  Sender: FDA-Public Use
  Company Number: US-SUN PHARMACEUTICAL INDUSTRIES LTD-2023R1-383871

PATIENT
  Sex: Female

DRUGS (1)
  1. CEQUA [Suspect]
     Active Substance: CYCLOSPORINE
     Indication: Dry eye
     Dosage: UNK UNK, BID
     Route: 065

REACTIONS (7)
  - Asthenopia [Unknown]
  - Drug ineffective [Unknown]
  - Intentional product use issue [Unknown]
  - Eye irritation [Unknown]
  - Dry eye [Unknown]
  - Liquid product physical issue [Unknown]
  - Product quality issue [Unknown]
